FAERS Safety Report 6203667-0 (Version None)
Quarter: 2009Q2

REPORT INFORMATION
  Report Type: 
  Country: None (occurrence: None)
  Receive Date: 20090527
  Receipt Date: 20090519
  Transmission Date: 20091009
  Serious: Yes (Hospitalization)
  Sender: FDA-Public Use
  Company Number: CA-BAYER-200832935NA

PATIENT
  Age: 54 Year
  Sex: Female

DRUGS (1)
  1. AVELOX [Suspect]
     Indication: LUNG INFECTION
     Dosage: TOTAL DAILY DOSE: 400 MG  UNIT DOSE: 400 MG
     Route: 048
     Dates: start: 20080115, end: 20080115

REACTIONS (4)
  - DIZZINESS [None]
  - OCULAR HYPERAEMIA [None]
  - RASH ERYTHEMATOUS [None]
  - RASH PRURITIC [None]
